FAERS Safety Report 12804250 (Version 1)
Quarter: 2016Q4

REPORT INFORMATION
  Report Type: Spontaneous
  Country: FR (occurrence: FR)
  Receive Date: 20161003
  Receipt Date: 20161003
  Transmission Date: 20170207
  Serious: Yes (Other)
  Sender: FDA-Public Use
  Company Number: FR-JNJFOC-20160929629

PATIENT
  Age: 81 Year
  Sex: Male

DRUGS (14)
  1. XARELTO [Suspect]
     Active Substance: RIVAROXABAN
     Indication: CEREBROVASCULAR ACCIDENT PROPHYLAXIS
     Route: 048
  2. MIANSERINE RATIOPHARM [Concomitant]
     Active Substance: MIANSERIN HYDROCHLORIDE
     Route: 065
  3. HYDREA [Concomitant]
     Active Substance: HYDROXYUREA
     Route: 065
  4. CORTANCYL [Concomitant]
     Active Substance: PREDNISONE
     Route: 065
  5. DIFFU K [Concomitant]
     Active Substance: POTASSIUM CHLORIDE
     Route: 065
  6. INEGY [Concomitant]
     Active Substance: EZETIMIBE\SIMVASTATIN
     Route: 065
  7. INIPOMP [Concomitant]
     Active Substance: PANTOPRAZOLE SODIUM
     Route: 065
  8. CARDENSIEL [Concomitant]
     Active Substance: BISOPROLOL FUMARATE
     Route: 065
  9. JOSIR [Concomitant]
     Active Substance: TAMSULOSIN
     Route: 065
  10. XARELTO [Suspect]
     Active Substance: RIVAROXABAN
     Indication: ATRIAL FIBRILLATION
     Route: 048
  11. ISOPTINE [Concomitant]
     Active Substance: VERAPAMIL HYDROCHLORIDE
     Route: 065
  12. LASILIX [Concomitant]
     Active Substance: FUROSEMIDE
     Route: 065
  13. DISCOTRINE [Concomitant]
     Active Substance: NITROGLYCERIN
     Route: 065
  14. OFEV [Concomitant]
     Active Substance: NINTEDANIB
     Route: 065

REACTIONS (2)
  - Drug ineffective [Unknown]
  - Pulmonary embolism [Unknown]
